FAERS Safety Report 7228175-X (Version None)
Quarter: 2011Q1

REPORT INFORMATION
  Report Type: 
  Country: None (occurrence: None)
  Receive Date: 20110114
  Receipt Date: 20110107
  Transmission Date: 20110831
  Serious: Yes (Other)
  Sender: FDA-Public Use
  Company Number: ES-PFIZER INC-2011004420

PATIENT
  Age: 81 Year
  Sex: Male

DRUGS (2)
  1. TRANKIMAZIN [Suspect]
     Indication: INSOMNIA
     Dosage: 0.25
     Dates: start: 20100101
  2. SINTROM UNO [Concomitant]
     Dosage: UNK

REACTIONS (1)
  - INTERNATIONAL NORMALISED RATIO INCREASED [None]
